FAERS Safety Report 8144638-7 (Version None)
Quarter: 2012Q1

REPORT INFORMATION
  Report Type: 
  Country: None (occurrence: None)
  Receive Date: 20120217
  Receipt Date: 20120202
  Transmission Date: 20120608
  Serious: Yes (Hospitalization)
  Sender: FDA-Public Use
  Company Number: IT-ROCHE-1034233

PATIENT
  Sex: Male

DRUGS (2)
  1. AVASTIN [Suspect]
     Indication: COLON CANCER
     Route: 042
     Dates: start: 20110901, end: 20110901
  2. XELODA [Concomitant]
     Route: 048
     Dates: start: 20110901, end: 20111007

REACTIONS (1)
  - COLONIC FISTULA [None]
